FAERS Safety Report 5530172-7 (Version None)
Quarter: 2007Q4

REPORT INFORMATION
  Report Type: 
  Country: None (occurrence: None)
  Receive Date: 20071130
  Receipt Date: 20071121
  Transmission Date: 20080405
  Serious: Yes (Other)
  Sender: FDA-Public Use
  Company Number: US-BAYER-200714645NA

PATIENT
  Age: 55 Year
  Sex: Female

DRUGS (2)
  1. AVELOX [Suspect]
     Indication: PNEUMONIA
     Route: 048
     Dates: start: 20070501
  2. AVELOX [Suspect]
     Route: 048
     Dates: start: 20070901

REACTIONS (13)
  - BLINDNESS [None]
  - CEREBRAL DISORDER [None]
  - DISSOCIATION [None]
  - DRUG TOXICITY [None]
  - HEARING DISABILITY [None]
  - HEARING IMPAIRED [None]
  - HYPOAESTHESIA [None]
  - IMPAIRED WORK ABILITY [None]
  - INFLUENZA [None]
  - NERVOUS SYSTEM DISORDER [None]
  - PARAESTHESIA [None]
  - PERSONALITY CHANGE [None]
  - TENDON PAIN [None]
